FAERS Safety Report 19679957 (Version 1)
Quarter: 2021Q3

REPORT INFORMATION
  Report Type: Spontaneous
  Country: BR (occurrence: BR)
  Receive Date: 20210809
  Receipt Date: 20210809
  Transmission Date: 20211014
  Serious: Yes (Death)
  Sender: FDA-Public Use
  Company Number: NVSC2021BR178911

PATIENT
  Sex: Female

DRUGS (2)
  1. EXELON [Suspect]
     Active Substance: RIVASTIGMINE TARTRATE
     Dosage: 13.3 MG, QD (27 MG RIVASTIGMINE BASE (PATCH 15 (CM2))
     Route: 065
     Dates: start: 20210121
  2. EXELON [Suspect]
     Active Substance: RIVASTIGMINE TARTRATE
     Indication: DEMENTIA ALZHEIMER^S TYPE
     Dosage: 9.5 MG, QD (18 MG RIVASTIGMINE BASE (PATCH 10 (CM2))
     Route: 065

REACTIONS (7)
  - Anaemia [Unknown]
  - Product quality issue [Unknown]
  - Incorrect dose administered [Unknown]
  - Liver disorder [Unknown]
  - Cardiac failure [Fatal]
  - Abdominal discomfort [Unknown]
  - Tremor [Unknown]
